FAERS Safety Report 5698180-3 (Version None)
Quarter: 2008Q2

REPORT INFORMATION
  Report Type: 
  Country: None (occurrence: None)
  Receive Date: 20080408
  Receipt Date: 20080329
  Transmission Date: 20081010
  Serious: Yes (Hospitalization, Other)
  Sender: FDA-Public Use
  Company Number: US-PFIZER INC-2008005118

PATIENT
  Age: 65 Year
  Sex: Male
  Weight: 81.6 kg

DRUGS (1)
  1. LIPITOR [Suspect]

REACTIONS (6)
  - FALL [None]
  - LOSS OF CONSCIOUSNESS [None]
  - MUSCLE SPASMS [None]
  - MYALGIA [None]
  - MYOSITIS [None]
  - SKIN LACERATION [None]
